FAERS Safety Report 7560233-2 (Version None)
Quarter: 2011Q2

REPORT INFORMATION
  Report Type: 
  Country: None (occurrence: None)
  Receive Date: 20110617
  Receipt Date: 20110617
  Transmission Date: 20111010
  Serious: Yes (Other)
  Sender: FDA-Public Use
  Company Number: None

PATIENT
  Age: 42 Year
  Sex: Female
  Weight: 54.4316 kg

DRUGS (1)
  1. ZOLOFT [Suspect]
     Indication: DEPRESSION
     Dosage: 50 MG. ONCE DAILY PO
     Route: 048
     Dates: start: 20061003, end: 20110611

REACTIONS (11)
  - HYPOAESTHESIA [None]
  - PARAESTHESIA [None]
  - NAUSEA [None]
  - INFLUENZA [None]
  - DRUG WITHDRAWAL SYNDROME [None]
  - HYPERHIDROSIS [None]
  - HEADACHE [None]
  - MYALGIA [None]
  - FEELING HOT [None]
  - FEAR [None]
  - FATIGUE [None]
